FAERS Safety Report 14118018 (Version 2)
Quarter: 2017Q4

REPORT INFORMATION
  Report Type: Report from Study
  Country: BR (occurrence: BR)
  Receive Date: 20171024
  Receipt Date: 20171214
  Transmission Date: 20180321
  Serious: Yes (Hospitalization, Other)
  Sender: FDA-Public Use
  Company Number: BR-AMGEN-BRACT2012044172

PATIENT
  Age: 53 Year
  Sex: Female
  Weight: 61 kg

DRUGS (5)
  1. ENBREL [Suspect]
     Active Substance: ETANERCEPT
     Indication: RHEUMATOID ARTHRITIS
     Dosage: 50 MG
     Route: 065
     Dates: start: 2000, end: 2014
  2. PREDNISONE. [Concomitant]
     Active Substance: PREDNISONE
     Dosage: UNK
  3. ENBREL [Suspect]
     Active Substance: ETANERCEPT
     Dosage: 50MG ONCE A WEEK (EVERY MONDAY)
     Route: 065
     Dates: start: 201708
  4. ENBREL [Suspect]
     Active Substance: ETANERCEPT
     Dosage: 25MG ONCE A WEEK
     Route: 065
     Dates: start: 2010, end: 2014
  5. ENBREL [Suspect]
     Active Substance: ETANERCEPT
     Dosage: 50 MG, ONCE WEEKLY
     Route: 058
     Dates: start: 20091005, end: 201210

REACTIONS (13)
  - Musculoskeletal pain [Recovered/Resolved]
  - Thyroid mass [Not Recovered/Not Resolved]
  - Fall [Recovered/Resolved]
  - Pain in extremity [Recovered/Resolved]
  - Accident [Recovered/Resolved]
  - Arthralgia [Recovered/Resolved]
  - Injury [Recovered/Resolved]
  - Cartilage injury [Not Recovered/Not Resolved]
  - Pain [Not Recovered/Not Resolved]
  - Hip fracture [Recovered/Resolved]
  - Palpitations [Recovered/Resolved]
  - Arthropathy [Recovered/Resolved]
  - Gait disturbance [Recovered/Resolved]

NARRATIVE: CASE EVENT DATE: 2012
